FAERS Safety Report 11929783 (Version 3)
Quarter: 2016Q1

REPORT INFORMATION
  Report Type: Report from Study
  Country: SE (occurrence: SE)
  Receive Date: 20160120
  Receipt Date: 20160129
  Transmission Date: 20160526
  Serious: Yes (Hospitalization)
  Sender: FDA-Public Use
  Company Number: SE-AMGEN-SWESP2015132877

PATIENT
  Age: 67 Year
  Sex: Female
  Weight: 38 kg

DRUGS (2)
  1. ENBREL [Suspect]
     Active Substance: ETANERCEPT
     Indication: RHEUMATOID ARTHRITIS
     Dosage: 50 MG, WEEKLY
     Route: 058
     Dates: start: 20151112, end: 20151202
  2. METHOTREXATE [Concomitant]
     Active Substance: METHOTREXATE
     Dosage: 7.5 MG, WEEKLY
     Dates: start: 20030917

REACTIONS (9)
  - Peripheral swelling [Unknown]
  - Insomnia [Unknown]
  - Injection site reaction [Recovered/Resolved]
  - Generalised erythema [Unknown]
  - Pruritus generalised [Unknown]
  - Urticaria [Recovered/Resolved]
  - Hypersensitivity [Unknown]
  - Blood pressure increased [Unknown]
  - Anxiety [Unknown]

NARRATIVE: CASE EVENT DATE: 2015
